FAERS Safety Report 21969621 (Version 3)
Quarter: 2023Q2

REPORT INFORMATION
  Report Type: Report from Study
  Country: AR (occurrence: AR)
  Receive Date: 20230208
  Receipt Date: 20230508
  Transmission Date: 20230721
  Serious: Yes (Other)
  Sender: FDA-Public Use
  Company Number: AR-009507513-2302ARG002094

PATIENT
  Age: 45 Year
  Sex: Female

DRUGS (2)
  1. KEYTRUDA [Suspect]
     Active Substance: PEMBROLIZUMAB
     Indication: Renal cell carcinoma
     Dosage: 200MG, EVERY 21 DAYS
     Route: 042
     Dates: start: 20221220
  2. AXITINIB [Suspect]
     Active Substance: AXITINIB
     Indication: Renal cell carcinoma

REACTIONS (4)
  - Nephrectomy [Recovering/Resolving]
  - Anaemia [Recovering/Resolving]
  - Impaired healing [Recovering/Resolving]
  - Post procedural discomfort [Recovering/Resolving]

NARRATIVE: CASE EVENT DATE: 20221201
